FAERS Safety Report 7485173-9 (Version None)
Quarter: 2011Q2

REPORT INFORMATION
  Report Type: 
  Country: None (occurrence: None)
  Receive Date: 20110517
  Receipt Date: 20101202
  Transmission Date: 20111010
  Serious: No
  Sender: FDA-Public Use
  Company Number: US-BAYER-2010-003991

PATIENT
  Age: 64 Year
  Sex: Female
  Weight: 98.413 kg

DRUGS (5)
  1. SYNTHROID [Concomitant]
  2. PROTONIX [Concomitant]
  3. PERCOCET [Concomitant]
  4. ALEVE (CAPLET) [Suspect]
     Indication: MUSCULOSKELETAL PAIN
     Dosage: 440 MG, BID
     Route: 048
     Dates: start: 20101202
  5. XANAX [Concomitant]

REACTIONS (1)
  - NO ADVERSE EVENT [None]
